FAERS Safety Report 4519010-9 (Version None)
Quarter: 2004Q4

REPORT INFORMATION
  Report Type: 
  Country: None (occurrence: None)
  Receive Date: 20041203
  Receipt Date: 20041203
  Transmission Date: 20050328
  Serious: No
  Sender: FDA-Public Use
  Company Number: None

PATIENT
  Age: 66 Year
  Sex: Male
  Weight: 44.4525 kg

DRUGS (3)
  1. CELEXA [Suspect]
     Indication: ALCOHOLISM
     Dosage: 20MG  DAILY OTHER
     Route: 050
     Dates: start: 20041025, end: 20041101
  2. CELEXA [Suspect]
     Indication: DEPRESSION
     Dosage: 20MG  DAILY OTHER
     Route: 050
     Dates: start: 20041025, end: 20041101
  3. ALCOHOL [Concomitant]

REACTIONS (1)
  - BLOOD SODIUM DECREASED [None]
